FAERS Safety Report 24575957 (Version 4)
Quarter: 2024Q4

REPORT INFORMATION
  Report Type: Report from Study
  Country: US (occurrence: US)
  Receive Date: 20241104
  Receipt Date: 20241223
  Transmission Date: 20250115
  Serious: Yes (Other)
  Sender: UCB
  Company Number: US-UCBSA-2024056099

PATIENT
  Age: 14 Year
  Sex: Female
  Weight: 56.8 kg

DRUGS (8)
  1. FINTEPLA [Suspect]
     Active Substance: FENFLURAMINE
     Indication: Severe myoclonic epilepsy of infancy
     Dosage: 20 MILLIGRAM, ONCE DAILY (QD) (0.41 MILLIGRAM/MILLILITER/DAY)
     Dates: start: 201709
  2. FINTEPLA [Suspect]
     Active Substance: FENFLURAMINE
     Dosage: 22 MILLIGRAM, 2X/DAY (BID)
     Route: 048
     Dates: start: 2018
  3. FINTEPLA [Suspect]
     Active Substance: FENFLURAMINE
     Dosage: 22 MILLIGRAM, ONCE DAILY (QD) (2 MILLIGRAM PER DAY (CURRENT DOSE: 0.4 MILLIGRAM/KILOGRAM/DAY))
     Route: 048
     Dates: start: 20200831
  4. FINTEPLA [Suspect]
     Active Substance: FENFLURAMINE
     Dosage: 5 MILLILITER, 2X/DAY (BID) (BY MOUTH)
     Route: 048
  5. FINTEPLA [Suspect]
     Active Substance: FENFLURAMINE
     Dosage: 26 MILLIGRAM, ONCE DAILY (QD)
     Route: 048
  6. FINTEPLA [Suspect]
     Active Substance: FENFLURAMINE
     Dosage: 17.6 MILLIGRAM, ONCE DAILY (QD)
     Route: 048
  7. LEVETIRACETAM [Concomitant]
     Active Substance: LEVETIRACETAM
     Indication: Seizure
     Dosage: 425 MILLIGRAM, 2X/DAY (BID)
     Route: 048
  8. TOPIRAMATE [Concomitant]
     Active Substance: TOPIRAMATE
     Indication: Seizure
     Dosage: 50 MILLIGRAM, 2X/DAY (BID)
     Route: 048

REACTIONS (1)
  - Mitral valve incompetence [Not Recovered/Not Resolved]

NARRATIVE: CASE EVENT DATE: 20200818
